FAERS Safety Report 19413838 (Version 8)
Quarter: 2024Q2

REPORT INFORMATION
  Report Type: Report from Study
  Country: US (occurrence: US)
  Receive Date: 20210615
  Receipt Date: 20240624
  Transmission Date: 20240716
  Serious: Yes (Other)
  Sender: FDA-Public Use
  Company Number: US-ROCHE-2296073

PATIENT
  Age: 27 Year
  Sex: Female

DRUGS (5)
  1. PULMOZYME [Suspect]
     Active Substance: DORNASE ALFA
     Indication: Spinal muscular atrophy
     Dosage: STRENGTH: 1 MG/ML, AMPULE, INHALE 2.5 ML VIA NEBULIZER TWO TIMES DAILY. INHALE 1 MG/ML SOLUTION TWIC
     Route: 065
  2. PULMOZYME [Suspect]
     Active Substance: DORNASE ALFA
     Indication: Neuromuscular scoliosis
     Route: 065
  3. PULMOZYME [Suspect]
     Active Substance: DORNASE ALFA
     Indication: Neuromuscular scoliosis
     Dosage: 30 X 2.5 ML AMPULES
     Route: 065
  4. PULMOZYME [Suspect]
     Active Substance: DORNASE ALFA
     Indication: Chronic respiratory failure
  5. PULMOZYME [Suspect]
     Active Substance: DORNASE ALFA
     Indication: Dependence on respirator

REACTIONS (2)
  - Off label use [Unknown]
  - Upper limb fracture [Unknown]
